FAERS Safety Report 9260431 (Version 1)
Quarter: 2013Q2

REPORT INFORMATION
  Report Type: Spontaneous
  Country: BE (occurrence: BE)
  Receive Date: 20130429
  Receipt Date: 20130429
  Transmission Date: 20140414
  Serious: Yes (Death)
  Sender: FDA-Public Use
  Company Number: BE-UCBSA-050833

PATIENT
  Age: 74 Year
  Sex: Female

DRUGS (5)
  1. VIMPAT [Suspect]
     Indication: STATUS EPILEPTICUS
     Route: 042
  2. LEVETIRACETAM [Suspect]
     Indication: STATUS EPILEPTICUS
  3. LAMOTRIGINE [Concomitant]
     Indication: STATUS EPILEPTICUS
  4. VALPROIC ACID [Concomitant]
     Indication: STATUS EPILEPTICUS
  5. MIDAZOLAM [Concomitant]
     Indication: STATUS EPILEPTICUS

REACTIONS (1)
  - Drug ineffective for unapproved indication [Fatal]
